FAERS Safety Report 8535926-0 (Version None)
Quarter: 2012Q3

REPORT INFORMATION
  Report Type: 
  Country: None (occurrence: None)
  Receive Date: 20120725
  Receipt Date: 20120720
  Transmission Date: 20120928
  Serious: Yes (Other)
  Sender: FDA-Public Use
  Company Number: PHHY2012BR053888

PATIENT
  Sex: Male

DRUGS (3)
  1. COMBIVENT [Concomitant]
     Indication: ASTHMA
     Dosage: 2 APPLICATIONS WHEN HE HAD ASTHMA EPISODES
  2. BUDESONIDE [Suspect]
     Indication: ASTHMA
     Dosage: 1 APPLICATION EVERY 12 HOURS
  3. FORMOTEROL FUMARATE [Suspect]
     Dosage: 1 APPLICATION EVERY 12 HOURS

REACTIONS (3)
  - PNEUMONIA [None]
  - THYMOMA [None]
  - LUNG NEOPLASM MALIGNANT [None]
